FAERS Safety Report 13260445 (Version 1)
Quarter: 2017Q1

REPORT INFORMATION
  Report Type: Spontaneous
  Country: US (occurrence: US)
  Receive Date: 20170222
  Receipt Date: 20170222
  Transmission Date: 20170428
  Serious: No
  Sender: FDA-Public Use
  Company Number: None

PATIENT
  Age: 79 Year
  Sex: Female
  Weight: 70.31 kg

DRUGS (5)
  1. COD LIVER OIL [Concomitant]
     Active Substance: COD LIVER OIL
  2. KYOLIC GARLIC [Concomitant]
     Active Substance: DIETARY SUPPLEMENT
  3. CENTRUM SILVER VITAMINS [Concomitant]
  4. BEET JUICE [Concomitant]
  5. METOPROLOL SUCCINATE ER [Suspect]
     Active Substance: METOPROLOL SUCCINATE

REACTIONS (8)
  - Palpitations [None]
  - Renal pain [None]
  - Fatigue [None]
  - Dizziness [None]
  - Dyspnoea [None]
  - Asthenia [None]
  - Urine output decreased [None]
  - Cough [None]

NARRATIVE: CASE EVENT DATE: 20161206
